FAERS Safety Report 9468787 (Version 1)
Quarter: 2013Q3

REPORT INFORMATION
  Report Type: Spontaneous
  Country: US (occurrence: US)
  Receive Date: 20130821
  Receipt Date: 20130821
  Transmission Date: 20140515
  Serious: Yes (Other)
  Sender: FDA-Public Use
  Company Number: US-TEVA-426715USA

PATIENT
  Age: 26 Year
  Sex: Female
  Weight: 94.89 kg

DRUGS (3)
  1. PARAGARD 380A [Suspect]
     Indication: CONTRACEPTION
     Route: 015
     Dates: start: 20130722
  2. ALBUTEROL [Concomitant]
     Indication: ASTHMA
  3. XOPENEX [Concomitant]
     Indication: ASTHMA

REACTIONS (1)
  - Device dislocation [Not Recovered/Not Resolved]
